FAERS Safety Report 8238844-0 (Version None)
Quarter: 2012Q1

REPORT INFORMATION
  Report Type: 
  Country: None (occurrence: None)
  Receive Date: 20120327
  Receipt Date: 20120323
  Transmission Date: 20120608
  Serious: Yes (Death)
  Sender: FDA-Public Use
  Company Number: IN-B.I. PHARMACEUTICALS,INC./RIDGEFIELD-2012-BP-03949BP

PATIENT
  Sex: Male
  Weight: 49.5 kg

DRUGS (11)
  1. DISODIUM HYDROGEN CITRATE [Concomitant]
     Indication: URINARY TRACT INFECTION
     Route: 048
     Dates: start: 20120223, end: 20120225
  2. LAMIVUDINE + ZIDOVUDINE [Concomitant]
     Dosage: 300 MG
     Route: 048
     Dates: start: 20120228, end: 20120310
  3. EFAVIRENZ [Concomitant]
     Indication: HIV INFECTION
     Dosage: 600 MG
     Route: 048
     Dates: start: 20120228, end: 20120311
  4. TENOFOVIR DISOPROXIL FUMARATE [Concomitant]
     Indication: HIV INFECTION
     Dosage: 300 MG
     Route: 048
     Dates: start: 20120228, end: 20120310
  5. NORFLOXACIN [Concomitant]
     Indication: URINARY TRACT INFECTION
     Dosage: 800 MG
     Route: 048
     Dates: start: 20120223, end: 20120225
  6. VIRAMUNE [Suspect]
     Indication: HIV INFECTION
     Dosage: 400 MG
     Route: 048
     Dates: start: 20120106, end: 20120228
  7. OMEPRAZOLE [Concomitant]
     Indication: NAUSEA
     Dosage: 20 MG
     Route: 048
     Dates: start: 20120223, end: 20120225
  8. ORAL REHYDRATION SOLUTION [Concomitant]
     Indication: HYPOTENSION
     Route: 048
     Dates: start: 20120223, end: 20120225
  9. LAMIVUDINE + ZIDOVUDINE [Concomitant]
     Indication: HIV INFECTION
     Route: 048
     Dates: start: 20120105, end: 20120228
  10. ZIDOVUDINE [Suspect]
     Indication: HIV INFECTION
     Route: 048
     Dates: start: 20120105, end: 20120228
  11. DOMPERIDONE [Concomitant]
     Indication: NAUSEA
     Dosage: 20 MG
     Route: 048
     Dates: start: 20120223, end: 20120225

REACTIONS (1)
  - MULTI-ORGAN FAILURE [None]
